FAERS Safety Report 20345600 (Version 1)
Quarter: 2022Q1

REPORT INFORMATION
  Report Type: Spontaneous
  Country: US (occurrence: None)
  Receive Date: 20220115
  Receipt Date: 20220115
  Transmission Date: 20220423
  Serious: Yes (Hospitalization)
  Sender: FDA-Public Use
  Company Number: None

PATIENT
  Sex: Female
  Weight: 56.3 kg

DRUGS (1)
  1. PEMETREXED [Suspect]
     Active Substance: PEMETREXED
     Indication: Product used for unknown indication
     Dates: end: 20220103

REACTIONS (4)
  - Chest pain [None]
  - Painful respiration [None]
  - Computerised tomogram abnormal [None]
  - Computerised tomogram thorax [None]

NARRATIVE: CASE EVENT DATE: 20211229
